FAERS Safety Report 18694585 (Version 2)
Quarter: 2022Q2

REPORT INFORMATION
  Report Type: Spontaneous
  Country: JP (occurrence: JP)
  Receive Date: 20210104
  Receipt Date: 20220523
  Transmission Date: 20220721
  Serious: Yes (Life-Threatening, Hospitalization)
  Sender: FDA-Public Use
  Company Number: JP-PFIZER INC-2020512871

PATIENT
  Age: 13 Year
  Sex: Female
  Weight: 31.9 kg

DRUGS (6)
  1. GENOTROPIN [Suspect]
     Active Substance: SOMATROPIN
     Indication: Short stature
     Dosage: 0.6 MG, 7X/WEEK
     Route: 058
     Dates: start: 20151117, end: 20160118
  2. GENOTROPIN [Suspect]
     Active Substance: SOMATROPIN
     Indication: Chronic kidney disease
     Dosage: 0.75 MG, 7X/WEEK
     Route: 058
     Dates: start: 20160119, end: 20160228
  3. GENOTROPIN [Suspect]
     Active Substance: SOMATROPIN
     Dosage: 0.9 MG, 7X/WEEK
     Route: 058
     Dates: start: 20160301
  4. ALFAROL [Concomitant]
     Active Substance: ALFACALCIDOL
     Indication: Chronic kidney disease
     Dosage: 0.5 UG, 1X/DAY
     Route: 048
     Dates: start: 20150915
  5. FEBUXOSTAT [Concomitant]
     Active Substance: FEBUXOSTAT
     Indication: Chronic kidney disease
     Dosage: 10 MG, 1X/DAY
     Route: 048
     Dates: start: 20200519
  6. DARBEPOETIN ALFA [Concomitant]
     Active Substance: DARBEPOETIN ALFA
     Indication: Chronic kidney disease
     Dosage: 40 UG, MONTHLY
     Route: 058
     Dates: start: 20150825

REACTIONS (1)
  - Langerhans^ cell histiocytosis [Recovering/Resolving]

NARRATIVE: CASE EVENT DATE: 20201102
